FAERS Safety Report 6477588-2 (Version None)
Quarter: 2009Q4

REPORT INFORMATION
  Report Type: 
  Country: None (occurrence: None)
  Receive Date: 20091207
  Receipt Date: 20091127
  Transmission Date: 20100525
  Serious: Yes (Life-Threatening, Hospitalization)
  Sender: FDA-Public Use
  Company Number: JP-ASTRAZENECA-2009SE27194

PATIENT
  Sex: Female

DRUGS (5)
  1. BLOPRESS [Suspect]
     Indication: HYPERTENSION
     Route: 048
     Dates: end: 20091107
  2. AMLODIPINE BESYLATE [Concomitant]
     Route: 048
  3. ITOROL [Concomitant]
     Route: 048
  4. METHYCOBAL [Concomitant]
     Route: 048
  5. MEXITIL [Concomitant]
     Route: 048

REACTIONS (1)
  - HYPOGLYCAEMIA [None]
